FAERS Safety Report 5173632-3 (Version None)
Quarter: 2006Q4

REPORT INFORMATION
  Report Type: 
  Country: None (occurrence: None)
  Receive Date: 20061206
  Receipt Date: 20061011
  Transmission Date: 20070319
  Serious: Yes (Hospitalization)
  Sender: FDA-Public Use
  Company Number: 2006CT000764

PATIENT
  Age: 51 Year
  Sex: Male
  Weight: 63.5036 kg

DRUGS (5)
  1. VENTAVIS [Suspect]
     Indication: PULMONARY HYPERTENSION
     Dosage: 5 UG;8XD;INH
     Route: 055
     Dates: start: 20060101
  2. ALLOPURINOL [Suspect]
     Dates: end: 20060101
  3. SILDENAFIL CITRATE [Concomitant]
  4. METOLAZONE [Concomitant]
  5. LASIX [Concomitant]

REACTIONS (2)
  - DYSPHAGIA [None]
  - LOCAL SWELLING [None]
